FAERS Safety Report 13028037 (Version 2)
Quarter: 2016Q4

REPORT INFORMATION
  Report Type: Spontaneous
  Country: US (occurrence: US)
  Receive Date: 20161214
  Receipt Date: 20161230
  Transmission Date: 20170207
  Serious: No
  Sender: FDA-Public Use
  Company Number: US-PFIZER INC-2016570791

PATIENT
  Age: 71 Year
  Sex: Female
  Weight: 63.49 kg

DRUGS (6)
  1. SKELAXIN [Suspect]
     Active Substance: METAXALONE
     Indication: MUSCLE SPASMS
     Dosage: UNK, DAILY (800MG 1 OR 2 DAILY BY MOUTH)
     Route: 048
  2. DILANTIN [Suspect]
     Active Substance: PHENYTOIN
     Indication: CONVULSION PROPHYLAXIS
     Dosage: 100 MG, 3X/DAY
     Route: 048
  3. TYLENOL EXTRA STRENGTH [Concomitant]
     Active Substance: ACETAMINOPHEN
     Indication: PAIN
     Dosage: UNK, (1 EXTRA STRENGTH TYLENOL BY MOUTH, NOT MORE THAN 3 A DAY)
     Route: 048
  4. MYSOLINE [Concomitant]
     Active Substance: PRIMIDONE
     Indication: CONVULSION PROPHYLAXIS
     Dosage: 500 MG, DAILY
     Route: 048
  5. VITAMIN B12 [Concomitant]
     Active Substance: CYANOCOBALAMIN
     Indication: SUPPLEMENTATION THERAPY
     Dosage: 1 DF, DAILY
     Route: 048
  6. SKELAXIN [Suspect]
     Active Substance: METAXALONE
     Indication: BACK PAIN

REACTIONS (4)
  - Impaired driving ability [Recovered/Resolved]
  - Body height decreased [Unknown]
  - Foot fracture [Not Recovered/Not Resolved]
  - Fall [Unknown]

NARRATIVE: CASE EVENT DATE: 201611
